FAERS Safety Report 7368044-8 (Version None)
Quarter: 2011Q1

REPORT INFORMATION
  Report Type: 
  Country: None (occurrence: None)
  Receive Date: 20110323
  Receipt Date: 20110315
  Transmission Date: 20110831
  Serious: Yes (Other)
  Sender: FDA-Public Use
  Company Number: US-BIOGENIDEC-2009BI033702

PATIENT
  Age: 32 Year
  Sex: Female

DRUGS (1)
  1. TYSABRI [Suspect]
     Indication: MULTIPLE SCLEROSIS
     Route: 042
     Dates: start: 20070207

REACTIONS (6)
  - ASTHMA [None]
  - CYSTITIS [None]
  - FALL [None]
  - ANAPHYLACTIC SHOCK [None]
  - STEVENS-JOHNSON SYNDROME [None]
  - MULTIPLE SCLEROSIS RELAPSE [None]
